FAERS Safety Report 15060269 (Version 1)
Quarter: 2018Q2

REPORT INFORMATION
  Report Type: Spontaneous
  Country: US (occurrence: US)
  Receive Date: 20180625
  Receipt Date: 20180625
  Transmission Date: 20180711
  Serious: Yes (Other)
  Sender: FDA-Public Use
  Company Number: US-GUERBET-US-20180156

PATIENT
  Age: 60 Year
  Sex: Male

DRUGS (4)
  1. DOXORUBICIN [Concomitant]
     Active Substance: DOXORUBICIN
     Indication: THERAPEUTIC EMBOLISATION
     Route: 065
  2. LIPIODOL [Suspect]
     Active Substance: ETHIODIZED OIL
     Indication: THERAPEUTIC EMBOLISATION
     Route: 065
  3. MITOMYCIN. [Concomitant]
     Active Substance: MITOMYCIN
     Indication: THERAPEUTIC EMBOLISATION
     Route: 065
  4. 200-300-MICROMETER POLYVINYL ALCOHOL PARTICLES [Concomitant]
     Indication: THERAPEUTIC EMBOLISATION
     Route: 065

REACTIONS (8)
  - Product use in unapproved indication [Recovered/Resolved]
  - Vomiting [Recovered/Resolved]
  - Abdominal pain upper [Recovered/Resolved]
  - Embolism arterial [Recovered/Resolved]
  - Gastric perforation [Recovered/Resolved]
  - Intra-abdominal fluid collection [Recovered/Resolved]
  - Oncologic complication [Recovered/Resolved]
  - Nausea [Recovered/Resolved]
